FAERS Safety Report 9467862 (Version 8)
Quarter: 2014Q2

REPORT INFORMATION
  Report Type: Report from Study
  Country: DE (occurrence: DE)
  Receive Date: 20130821
  Receipt Date: 20140408
  Transmission Date: 20141212
  Serious: No
  Sender: FDA-Public Use
  Company Number: PHHY2013DE089582

PATIENT
  Sex: Female

DRUGS (14)
  1. AMN107 [Suspect]
     Indication: CHRONIC MYELOID LEUKAEMIA
     Dosage: 600 MG, PER DAY
     Route: 048
     Dates: start: 20130703, end: 20130911
  2. AMN107 [Suspect]
     Dosage: 450 MG, PER DAY
     Route: 048
     Dates: start: 20130919, end: 20131202
  3. AMN107 [Suspect]
     Dosage: 600 MG, UNK
     Route: 048
     Dates: start: 20131203
  4. METOSUCCINAT [Concomitant]
     Dosage: 95 MG
     Dates: start: 20120810
  5. RAMILICH [Concomitant]
     Dosage: 15 MG
     Dates: start: 20120810
  6. NITREDIPINO [Concomitant]
     Dosage: 20 MG
     Dates: start: 20120810
  7. CLOPIDOGREL [Concomitant]
     Dosage: 75 MG, UNK
     Dates: start: 20110502
  8. ASS [Concomitant]
     Dosage: 100 MG, UNK
     Dates: start: 20110502
  9. ATORVASTATIN [Concomitant]
     Dosage: 40 MG, UNK
     Dates: start: 20130208
  10. CALCIMAGON D3 [Concomitant]
     Dosage: 500 MG, UNK
     Dates: start: 20130208
  11. NOVAMINSULFON [Concomitant]
     Dosage: 1000 MG, UNK
     Dates: start: 20130910, end: 20130911
  12. TEPILTA [Concomitant]
     Dosage: 4 DF, 4 SACHETS
     Dates: start: 20130910
  13. TEVANATE [Concomitant]
     Dosage: 10 MG, UNK
     Dates: start: 20131016
  14. MOVICOL                            /01625101/ [Concomitant]
     Dosage: UNK
     Dates: start: 20140115

REACTIONS (8)
  - Throat tightness [Recovered/Resolved]
  - Dyspnoea [Recovered/Resolved]
  - Rash [Recovered/Resolved]
  - Headache [Recovered/Resolved]
  - Abdominal pain [Recovered/Resolved]
  - Alopecia [Not Recovered/Not Resolved]
  - Constipation [Recovered/Resolved]
  - Dysphonia [Recovered/Resolved]
